FAERS Safety Report 13391909 (Version 2)
Quarter: 2017Q2

REPORT INFORMATION
  Report Type: Report from Study
  Country: BR (occurrence: BR)
  Receive Date: 20170331
  Receipt Date: 20170405
  Transmission Date: 20170830
  Serious: Yes (Death, Hospitalization, Other)
  Sender: FDA-Public Use
  Company Number: BR-ALEXION-A201703331

PATIENT
  Age: 28 Year
  Sex: Female

DRUGS (2)
  1. SOLIRIS [Suspect]
     Active Substance: ECULIZUMAB
     Indication: PAROXYSMAL NOCTURNAL HAEMOGLOBINURIA
     Dosage: 600 MG, QW
     Route: 042
     Dates: start: 20141120, end: 20141211
  2. SOLIRIS [Suspect]
     Active Substance: ECULIZUMAB
     Dosage: 900 MG, Q2W
     Route: 042
     Dates: start: 20141218

REACTIONS (11)
  - Respiratory failure [Unknown]
  - Abdominal pain upper [Recovering/Resolving]
  - Hyperglycaemia [Unknown]
  - Haematuria [Unknown]
  - Brain death [Fatal]
  - Acute kidney injury [Unknown]
  - Haemolysis [Recovering/Resolving]
  - Back pain [Unknown]
  - Pyrexia [Unknown]
  - Anaemia [Unknown]
  - Sepsis [Unknown]

NARRATIVE: CASE EVENT DATE: 20170317
